FAERS Safety Report 5779385-X (Version None)
Quarter: 2008Q2

REPORT INFORMATION
  Report Type: 
  Country: None (occurrence: None)
  Receive Date: 20080619
  Receipt Date: 20080222
  Transmission Date: 20081010
  Serious: No
  Sender: FDA-Public Use
  Company Number: US-ASTRAZENECA-2008UW03769

PATIENT
  Age: 60 Year
  Sex: Female
  Weight: 79.4 kg

DRUGS (8)
  1. ATACAND [Suspect]
     Indication: HYPERTENSION
     Route: 048
  2. AMANTADINE HCL [Concomitant]
  3. FLOVENT [Concomitant]
  4. CELEBREX [Concomitant]
  5. PREMPRO [Concomitant]
  6. REPLACEMENT HORMONE [Concomitant]
  7. HYDROCHLOROTHIAZIDE [Concomitant]
  8. ALLERGY SHOTS [Concomitant]

REACTIONS (5)
  - DIZZINESS [None]
  - DYSPNOEA [None]
  - HEART RATE INCREASED [None]
  - ORTHOSTATIC HYPOTENSION [None]
  - SENSATION OF FOREIGN BODY [None]
